FAERS Safety Report 7679301-X (Version None)
Quarter: 2011Q3

REPORT INFORMATION
  Report Type: 
  Country: None (occurrence: None)
  Receive Date: 20110810
  Receipt Date: 20110804
  Transmission Date: 20111222
  Serious: Yes (Other)
  Sender: FDA-Public Use
  Company Number: A0939623A

PATIENT
  Age: 18 Year
  Sex: Female

DRUGS (2)
  1. CALCIUM CARBONATE [Suspect]
     Indication: DYSPEPSIA
     Dosage: ORAL
     Route: 048
     Dates: start: 20110803, end: 20110803
  2. OMEPRAZOLE [Concomitant]

REACTIONS (2)
  - FAECES DISCOLOURED [None]
  - ULCER HAEMORRHAGE [None]
